FAERS Safety Report 13055353 (Version 1)
Quarter: 2016Q4

REPORT INFORMATION
  Report Type: Spontaneous
  Country: RO (occurrence: RO)
  Receive Date: 20161222
  Receipt Date: 20161222
  Transmission Date: 20170207
  Serious: Yes (Hospitalization)
  Sender: FDA-Public Use
  Company Number: RO-FRESENIUS KABI-FK201610042

PATIENT
  Age: 59 Year
  Sex: Male

DRUGS (1)
  1. LEVOFLOXACIN (MANUFACTURER UNKNOWN) [Suspect]
     Active Substance: LEVOFLOXACIN
     Indication: OROPHARYNGEAL SQUAMOUS CELL CARCINOMA
     Route: 065

REACTIONS (1)
  - Hyponatraemia [Recovered/Resolved]
